FAERS Safety Report 4853351-0 (Version None)
Quarter: 2005Q4

REPORT INFORMATION
  Report Type: 
  Country: None (occurrence: None)
  Receive Date: 20051212
  Receipt Date: 20051128
  Transmission Date: 20060501
  Serious: Yes (Other)
  Sender: FDA-Public Use
  Company Number: US200511003145

PATIENT
  Sex: Female

DRUGS (1)
  1. EVISTA [Suspect]
     Dates: start: 19990101

REACTIONS (1)
  - PORTAL VEIN THROMBOSIS [None]
